FAERS Safety Report 10235641 (Version 2)
Quarter: 2014Q2

REPORT INFORMATION
  Report Type: Spontaneous
  Country: US (occurrence: US)
  Receive Date: 20140613
  Receipt Date: 20140624
  Transmission Date: 20141212
  Serious: Yes (Other)
  Sender: FDA-Public Use
  Company Number: CHPA2014US007792

PATIENT
  Age: 59 Year
  Sex: Male

DRUGS (1)
  1. PRIVATE LABEL STEP 1 21MG ACCT UNKNOWN [Suspect]
     Indication: SMOKING CESSATION THERAPY
     Dosage: UNK
     Route: 062
     Dates: start: 2011

REACTIONS (4)
  - Cardiac failure congestive [Not Recovered/Not Resolved]
  - Gait disturbance [Not Recovered/Not Resolved]
  - Mental impairment [Not Recovered/Not Resolved]
  - Wrong technique in drug usage process [Unknown]
